FAERS Safety Report 6017470-8 (Version None)
Quarter: 2008Q4

REPORT INFORMATION
  Report Type: 
  Country: None (occurrence: None)
  Receive Date: 20081219
  Receipt Date: 20081209
  Transmission Date: 20090506
  Serious: Yes (Congenital Anomaly)
  Sender: FDA-Public Use
  Company Number: B0550610A

PATIENT
  Sex: 0

DRUGS (5)
  1. PAROXETINE HCL [Suspect]
     Dosage: TRANSPLACENTARY
     Route: 064
  2. OXAZEPAM [Concomitant]
  3. DICLOFENAC SODIUM [Concomitant]
  4. NIFEDIPINE [Concomitant]
  5. ATENOLOL [Concomitant]

REACTIONS (4)
  - ATRIAL SEPTAL DEFECT [None]
  - CONGENITAL AORTIC ANOMALY [None]
  - MATERNAL DRUGS AFFECTING FOETUS [None]
  - VENTRICULAR SEPTAL DEFECT [None]
